FAERS Safety Report 5681042-5 (Version None)
Quarter: 2008Q1

REPORT INFORMATION
  Report Type: 
  Country: None (occurrence: None)
  Receive Date: 20080325
  Receipt Date: 20080312
  Transmission Date: 20080703
  Serious: Yes (Other)
  Sender: FDA-Public Use
  Company Number: 2008SP002145

PATIENT
  Age: 78 Year
  Sex: Male

DRUGS (8)
  1. CORICIDIN HBP CHEST CONGESTION + COUGH (DEXTROMETHORPHAN HYDROBROMIDE/ [Suspect]
     Dosage: 1 DF;HS;PO
     Route: 048
     Dates: start: 20080111
  2. COUMADIN [Concomitant]
  3. BLOOD PRESSURE MEDICATION [Concomitant]
  4. LASIX [Concomitant]
  5. MONOPRIL [Concomitant]
  6. PLAVIX [Concomitant]
  7. PRAVACHOL [Concomitant]
  8. ASPIRIN [Concomitant]

REACTIONS (6)
  - ANOREXIA [None]
  - DEPRESSION [None]
  - EPISTAXIS [None]
  - JOINT SWELLING [None]
  - OXYGEN SATURATION DECREASED [None]
  - THROMBOSIS [None]
